FAERS Safety Report 22965651 (Version 2)
Quarter: 2024Q1

REPORT INFORMATION
  Report Type: Spontaneous
  Country: US (occurrence: US)
  Receive Date: 20230921
  Receipt Date: 20240318
  Transmission Date: 20240410
  Serious: Yes (Other)
  Sender: FDA-Public Use
  Company Number: US-CIPLA LTD.-2023US05486

PATIENT

DRUGS (1)
  1. ATORVASTATIN [Suspect]
     Active Substance: ATORVASTATIN
     Indication: Product used for unknown indication
     Dosage: UNK (10 MG DAILY FOR GREATER THAN 1 YEAR)
     Route: 065

REACTIONS (3)
  - Muscle rupture [Recovering/Resolving]
  - Swelling [Recovered/Resolved]
  - Arthralgia [Recovered/Resolved]
